FAERS Safety Report 7336591-0 (Version None)
Quarter: 2011Q1

REPORT INFORMATION
  Report Type: 
  Country: None (occurrence: None)
  Receive Date: 20110307
  Receipt Date: 20110302
  Transmission Date: 20110831
  Serious: Yes (Hospitalization, Other)
  Sender: FDA-Public Use
  Company Number: US-GENENTECH-301814

PATIENT
  Sex: Female
  Weight: 96.8 kg

DRUGS (24)
  1. FLONASE [Concomitant]
     Indication: HYPERSENSITIVITY
     Dosage: UNK
     Dates: start: 20090227
  2. PATANASE [Concomitant]
     Indication: PRODUCT USED FOR UNKNOWN INDICATION
  3. SYMBICORT [Concomitant]
     Indication: PRODUCT USED FOR UNKNOWN INDICATION
  4. COZAAR [Concomitant]
     Indication: PRODUCT USED FOR UNKNOWN INDICATION
  5. VITAMIN D [Concomitant]
     Indication: PRODUCT USED FOR UNKNOWN INDICATION
  6. XOPENEX [Concomitant]
     Indication: ASTHMA
     Dosage: UNK
     Dates: start: 20090227
  7. NORVASC [Concomitant]
     Indication: PRODUCT USED FOR UNKNOWN INDICATION
  8. MESTINON [Concomitant]
     Indication: PRODUCT USED FOR UNKNOWN INDICATION
  9. ALLEGRA [Concomitant]
     Indication: HYPERSENSITIVITY
     Dosage: UNK TABLET, QD
     Dates: start: 20090227
  10. VENTOLIN [Concomitant]
     Indication: PRODUCT USED FOR UNKNOWN INDICATION
  11. BROVANA [Concomitant]
     Indication: ASTHMA
     Dosage: UNK
     Dates: start: 20100127
  12. XOLAIR [Suspect]
     Indication: ASTHMA
     Dosage: 300 MG, Q4W
     Route: 058
     Dates: start: 20100413
  13. XOLAIR [Suspect]
     Dosage: UNK
     Dates: start: 20100511
  14. PULMICORT [Concomitant]
     Indication: ASTHMA
     Dosage: UNK
     Dates: start: 20100127
  15. HYDROCHLOROTHIAZIDE [Concomitant]
     Indication: PRODUCT USED FOR UNKNOWN INDICATION
  16. ALVESCO [Concomitant]
     Indication: ASTHMA
     Dosage: UNK
     Dates: start: 20100127
  17. LOVAZA [Concomitant]
     Indication: PRODUCT USED FOR UNKNOWN INDICATION
  18. PREDNISONE [Concomitant]
     Indication: ASTHMA
     Dosage: 20 MG, QD
     Dates: start: 20090227
  19. XYZAL [Concomitant]
     Indication: PRODUCT USED FOR UNKNOWN INDICATION
  20. ZYFLO [Concomitant]
     Indication: ASTHMA
     Dosage: UNK TABLET, QID
     Dates: start: 20090227
  21. MENEST [Concomitant]
     Indication: PRODUCT USED FOR UNKNOWN INDICATION
  22. MULTI-VITAMIN [Concomitant]
     Indication: PRODUCT USED FOR UNKNOWN INDICATION
  23. PROTONIX [Concomitant]
     Indication: PRODUCT USED FOR UNKNOWN INDICATION
  24. PAXIL [Concomitant]
     Indication: PRODUCT USED FOR UNKNOWN INDICATION

REACTIONS (8)
  - DYSPNOEA [None]
  - PNEUMONIA [None]
  - HEADACHE [None]
  - BLOOD PRESSURE DECREASED [None]
  - THROAT TIGHTNESS [None]
  - BLOOD PRESSURE INCREASED [None]
  - BLINDNESS [None]
  - URTICARIA [None]
